FAERS Safety Report 24160897 (Version 1)
Quarter: 2024Q3

REPORT INFORMATION
  Report Type: Spontaneous
  Country: US (occurrence: US)
  Receive Date: 20240801
  Receipt Date: 20240801
  Transmission Date: 20241017
  Serious: No
  Sender: BLUEPRINT MEDICINES
  Company Number: US-Blueprint Medicines Corporation-4351

PATIENT
  Sex: Female

DRUGS (1)
  1. AYVAKIT [Suspect]
     Active Substance: AVAPRITINIB
     Indication: Gastrointestinal stromal tumour
     Route: 065

REACTIONS (5)
  - Abdominal discomfort [Unknown]
  - Diarrhoea [Unknown]
  - Constipation [Unknown]
  - Memory impairment [Unknown]
  - Confusional state [Unknown]
